FAERS Safety Report 11646787 (Version 3)
Quarter: 2016Q3

REPORT INFORMATION
  Report Type: Spontaneous
  Country: US (occurrence: US)
  Receive Date: 20151020
  Receipt Date: 20160803
  Transmission Date: 20161109
  Serious: Yes (Death)
  Sender: FDA-Public Use
  Company Number: US-ROCHE-ITM201504IM013827

PATIENT
  Sex: Female
  Weight: 90.8 kg

DRUGS (2)
  1. ESBRIET [Suspect]
     Active Substance: PIRFENIDONE
     Indication: IDIOPATHIC PULMONARY FIBROSIS
     Dosage: TAKE 3 CAPSULES BY MOUTH THREE TIMES A DAY WITH?FOOD.
     Route: 048
     Dates: start: 20150226
  2. ESBRIET [Suspect]
     Active Substance: PIRFENIDONE
     Route: 048
     Dates: start: 20150227

REACTIONS (6)
  - Cough [Unknown]
  - Upper respiratory tract congestion [Unknown]
  - Urinary tract infection [Unknown]
  - Weight decreased [Unknown]
  - Rales [Unknown]
  - Death [Fatal]
